FAERS Safety Report 6377686-8 (Version None)
Quarter: 2009Q3

REPORT INFORMATION
  Report Type: 
  Country: None (occurrence: None)
  Receive Date: 20090923
  Receipt Date: 20090923
  Transmission Date: 20100115
  Serious: Yes (Death)
  Sender: FDA-Public Use
  Company Number: None

PATIENT
  Sex: Male

DRUGS (6)
  1. REVLIMID [Suspect]
     Indication: NON-HODGKIN'S LYMPHOMA
     Dosage: 15MG DAILY ORALLY
     Route: 048
     Dates: start: 20090201, end: 20090301
  2. FENTANYL TRANSDERMAL SYSTEM [Concomitant]
  3. SENNA [Concomitant]
  4. FLUOXETINE [Concomitant]
  5. INDOMETHACIN [Concomitant]
  6. BENZONATATE [Concomitant]

REACTIONS (1)
  - HOSPICE CARE [None]
